FAERS Safety Report 6963014-3 (Version None)
Quarter: 2010Q3

REPORT INFORMATION
  Report Type: 
  Country: None (occurrence: None)
  Receive Date: 20100823
  Receipt Date: 20100621
  Transmission Date: 20110219
  Serious: Yes (Other)
  Sender: FDA-Public Use
  Company Number: 014238

PATIENT
  Sex: Female
  Weight: 52.1 kg

DRUGS (2)
  1. CIMZIA [Suspect]
     Indication: CROHN'S DISEASE
     Dosage: (400 MG 1X/2 WEEKS SUBCUTANEOUS)
     Route: 058
     Dates: start: 20091228, end: 20100501
  2. ENTOCORT EC [Concomitant]

REACTIONS (2)
  - DRUG INEFFECTIVE [None]
  - LARGE INTESTINAL STRICTURE [None]
